FAERS Safety Report 24406939 (Version 1)
Quarter: 2024Q4

REPORT INFORMATION
  Report Type: Spontaneous
  Country: US (occurrence: US)
  Receive Date: 20241007
  Receipt Date: 20241007
  Transmission Date: 20250115
  Serious: No
  Sender: AMGEN
  Company Number: US-AMGEN-USASP2024195885

PATIENT
  Sex: Male

DRUGS (1)
  1. TEPEZZA [Suspect]
     Active Substance: TEPROTUMUMAB-TRBW
     Indication: Product used for unknown indication
     Dosage: UNK, FIRST COURSE
     Route: 042
     Dates: start: 20201101, end: 20210501

REACTIONS (4)
  - Lagophthalmos [Unknown]
  - Headache [Unknown]
  - Nausea [Unknown]
  - Therapeutic product effect incomplete [Unknown]
